FAERS Safety Report 20096838 (Version 1)
Quarter: 2021Q4

REPORT INFORMATION
  Report Type: Spontaneous
  Country: NL (occurrence: NL)
  Receive Date: 20211122
  Receipt Date: 20211122
  Transmission Date: 20220303
  Serious: Yes (Hospitalization, Other)
  Sender: FDA-Public Use
  Company Number: NL-LUPIN PHARMACEUTICALS INC.-2021-22649

PATIENT
  Age: 56 Year
  Sex: Female
  Weight: 65 kg

DRUGS (3)
  1. LORAZEPAM [Suspect]
     Active Substance: LORAZEPAM
     Indication: Overdose
     Dosage: 21 DOSAGE FORM; (LORAZEPAM 1 MG TABLET)
     Route: 048
  2. LORAZEPAM [Suspect]
     Active Substance: LORAZEPAM
     Dosage: 4 DOSAGE FORM; (LORAZEPAM 2.5 MG TABLET)
     Route: 048
  3. CLOMIPRAMINE [Suspect]
     Active Substance: CLOMIPRAMINE
     Indication: Product used for unknown indication
     Dosage: 60 DOSAGE FORM (60 CONTROLLED RELEASE TABLETS)
     Route: 048

REACTIONS (5)
  - Bezoar [Recovering/Resolving]
  - Overdose [Unknown]
  - Gastrointestinal motility disorder [Recovering/Resolving]
  - Blood creatine phosphokinase increased [Recovering/Resolving]
  - Mydriasis [Recovering/Resolving]
